FAERS Safety Report 8062156-1 (Version None)
Quarter: 2012Q1

REPORT INFORMATION
  Report Type: 
  Country: None (occurrence: None)
  Receive Date: 20120123
  Receipt Date: 20120111
  Transmission Date: 20120608
  Serious: Yes (Hospitalization)
  Sender: FDA-Public Use
  Company Number: US-MYLANLABS-2008S1014485

PATIENT
  Age: 73 Year
  Sex: Female
  Weight: 53.98 kg

DRUGS (21)
  1. METHOTREXATE [Suspect]
     Route: 048
     Dates: start: 20080529, end: 20090624
  2. CALCIUM [Concomitant]
     Indication: OSTEOPENIA
     Route: 048
     Dates: start: 20040101
  3. FISH OIL [Concomitant]
     Indication: DYSLIPIDAEMIA
     Dates: start: 20040101
  4. CARVEDILOL [Concomitant]
     Indication: HYPERTENSION
     Route: 048
     Dates: start: 20010101
  5. ACETYLSALICYLIC ACID SRT [Concomitant]
  6. ACETAMINOPHEN [Concomitant]
     Indication: RHEUMATOID ARTHRITIS
     Route: 048
     Dates: start: 20070501
  7. DIGOXIN [Concomitant]
     Indication: CARDIAC FAILURE CONGESTIVE
     Route: 048
     Dates: start: 20010101
  8. FOLIC ACID [Concomitant]
     Indication: PROPHYLAXIS
     Dates: start: 20080108
  9. METHOTREXATE [Suspect]
     Indication: RHEUMATOID ARTHRITIS
     Route: 048
     Dates: start: 20080110, end: 20080508
  10. GEMFIBROZIL [Concomitant]
     Indication: DYSLIPIDAEMIA
     Dates: start: 20030101
  11. ISONIAZID [Concomitant]
     Indication: ANTIBIOTIC PROPHYLAXIS
     Dates: start: 20071220
  12. PENTOXIFYLLINE [Concomitant]
     Indication: CORONARY ARTERY DISEASE
     Dates: start: 20010101
  13. FUROSEMIDE [Concomitant]
     Indication: HYPERTENSION
     Route: 048
     Dates: start: 20010101
  14. RANITIDINE [Concomitant]
     Indication: GASTRITIS
     Route: 048
     Dates: start: 20060101
  15. ACETYLSALICYLIC ACID SRT [Concomitant]
     Indication: CORONARY ARTERY DISEASE
     Dates: start: 20010101
  16. ISOSORBIDE MONONITRATE [Concomitant]
     Indication: HYPERTENSION
     Dates: start: 20010101
  17. AMLODIPINE BESYLATE [Concomitant]
     Indication: HYPERTENSION
     Dates: start: 20010101
  18. HUMIRA [Suspect]
     Dates: start: 20080530, end: 20080707
  19. ALENDRONATE SODIUM [Concomitant]
     Indication: OSTEOPENIA
     Route: 048
     Dates: start: 20071208
  20. CLOPIDOGREL [Concomitant]
     Indication: CORONARY ARTERY DISEASE
     Route: 048
     Dates: start: 20060101
  21. HUMIRA [Suspect]
     Indication: RHEUMATOID ARTHRITIS
     Route: 058
     Dates: start: 20080108, end: 20080429

REACTIONS (1)
  - OESOPHAGEAL ULCER [None]
